FAERS Safety Report 5268635-4 (Version None)
Quarter: 2007Q1

REPORT INFORMATION
  Report Type: 
  Country: None (occurrence: None)
  Receive Date: 20070313
  Receipt Date: 20070228
  Transmission Date: 20070707
  Serious: Yes (Death)
  Sender: FDA-Public Use
  Company Number: 237519

PATIENT
  Age: 64 Year
  Sex: Female

DRUGS (12)
  1. MABTHERA (RITUXIMAB) CONC FOR SOLUTION FOR INFUSION [Suspect]
     Indication: RHEUMATOID ARTHRITIS
     Dosage: 1000 MG
     Dates: start: 20060913, end: 20060927
  2. RAMIPRIL [Concomitant]
  3. PREDNISOLONE [Concomitant]
  4. BEHEPAN (CYANOCOBALAMIN) [Concomitant]
  5. ALVEDON (ACETAMINOPHEN) [Concomitant]
  6. DOLOXENE (PROPOXYPHENE NAPSYLATE) [Concomitant]
  7. FOLACIN (FOLIC ACID) [Concomitant]
  8. IMPUGAN (FUROSEMIDE) [Concomitant]
  9. NEXIUM [Concomitant]
  10. SIMVASTATIN [Concomitant]
  11. CALCEVITA (ASCORBIC ACID, CALCIU, CARBONATE, ERGOCALCIFEROL, PYRIDOXIN [Concomitant]
  12. OPTINATE SEPTIMUM (RISEDRONIC ACID) [Concomitant]

REACTIONS (1)
  - DEATH [None]
